FAERS Safety Report 7089336-6 (Version None)
Quarter: 2010Q4

REPORT INFORMATION
  Report Type: 
  Country: None (occurrence: None)
  Receive Date: 20101108
  Receipt Date: 20101029
  Transmission Date: 20110411
  Serious: Yes (Other)
  Sender: FDA-Public Use
  Company Number: DE-GILEAD-2010-0032789

PATIENT
  Sex: Female

DRUGS (11)
  1. RANEXA [Suspect]
     Indication: CORONARY ARTERY DISEASE
     Route: 048
     Dates: start: 20100614, end: 20100616
  2. CLOPIDOGREL [Concomitant]
  3. BISOBETA [Concomitant]
  4. ASPIRIN [Concomitant]
  5. DIGIMED [Concomitant]
  6. SPIRONOLACTONE [Concomitant]
  7. PANTOPRAZOLE SODIUM [Concomitant]
  8. RAMIPRIL HCT [Concomitant]
  9. SIMVA [Concomitant]
  10. TORSEMIDE [Concomitant]
  11. MARCUMAR [Concomitant]

REACTIONS (2)
  - CARDIAC FAILURE [None]
  - DYSPNOEA [None]
